FAERS Safety Report 23870797 (Version 1)
Quarter: 2024Q2

REPORT INFORMATION
  Report Type: Spontaneous
  Country: NL (occurrence: NL)
  Receive Date: 20240518
  Receipt Date: 20240518
  Transmission Date: 20240716
  Serious: Yes (Other)
  Sender: FDA-Public Use
  Company Number: None

PATIENT
  Age: 41 Year
  Sex: Male
  Weight: 70 kg

DRUGS (3)
  1. QUETIAPINE [Suspect]
     Active Substance: QUETIAPINE
     Indication: Depression
     Dosage: 1X PER DAY IN THE EVENING
     Dates: start: 20211004, end: 20240204
  2. WELLBUTRIN [Suspect]
     Active Substance: BUPROPION HYDROCHLORIDE
     Indication: Antidepressant therapy
     Dosage: 1X PER DAY IN THE MORNING
     Dates: start: 20240116, end: 20240223
  3. ZOPICLONE [Concomitant]
     Active Substance: ZOPICLONE
     Dosage: TABLET, 7,5 MG (MILLIGRAM)

REACTIONS (12)
  - Dizziness [Recovering/Resolving]
  - Hyperhidrosis [Recovering/Resolving]
  - Dry skin [Recovering/Resolving]
  - Tension [Recovering/Resolving]
  - Neuropathy peripheral [Recovering/Resolving]
  - Suspiciousness [Recovering/Resolving]
  - Hypomania [Recovering/Resolving]
  - Dyspnoea [Recovering/Resolving]
  - Insomnia [Recovering/Resolving]
  - Tachycardia [Recovering/Resolving]
  - Impulsive behaviour [Recovering/Resolving]
  - Dry mouth [Recovering/Resolving]
